FAERS Safety Report 9986157 (Version 1)
Quarter: 2014Q1

REPORT INFORMATION
  Report Type: Report from Study
  Country: US (occurrence: US)
  Receive Date: 20140307
  Receipt Date: 20140307
  Transmission Date: 20141002
  Serious: No
  Sender: FDA-Public Use
  Company Number: US-ABBVIE-13P-163-1088349-00

PATIENT
  Age: 72 Year
  Sex: Female

DRUGS (3)
  1. HUMIRA [Suspect]
     Indication: COLITIS ULCERATIVE
     Dates: start: 20130203
  2. STARLIX [Concomitant]
     Indication: BLOOD GLUCOSE ABNORMAL
  3. UNKNOWN MEDICATION [Concomitant]
     Indication: BLOOD CHOLESTEROL
     Dosage: PILL

REACTIONS (3)
  - Gastrointestinal stoma complication [Not Recovered/Not Resolved]
  - Drug ineffective [Not Recovered/Not Resolved]
  - Stoma site irritation [Not Recovered/Not Resolved]
